FAERS Safety Report 22094010 (Version 1)
Quarter: 2023Q1

REPORT INFORMATION
  Report Type: Spontaneous
  Country: US (occurrence: None)
  Receive Date: 20230314
  Receipt Date: 20230314
  Transmission Date: 20230418
  Serious: Yes (Death)
  Sender: FDA-Public Use
  Company Number: None

PATIENT
  Age: 44 Year
  Sex: Female
  Weight: 71.1 kg

DRUGS (4)
  1. GAMMAGARD [Suspect]
     Active Substance: HUMAN IMMUNOGLOBULIN G
     Indication: Chronic inflammatory demyelinating polyradiculoneuropathy
     Dosage: OTHER FREQUENCY : EVERY 3 WEEKS;?
     Route: 042
     Dates: start: 20230301, end: 20230303
  2. acetaminophen 650mg (2 x 325mg tab) [Concomitant]
     Dates: start: 20230301, end: 20230303
  3. promethazine 12.5mg tablet [Concomitant]
     Dates: start: 20230301, end: 20230303
  4. normal saline 5ml flush [Concomitant]
     Dates: start: 20230301, end: 20230303

REACTIONS (4)
  - Unresponsive to stimuli [None]
  - Septic shock [None]
  - Metabolic acidosis [None]
  - Multiple organ dysfunction syndrome [None]

NARRATIVE: CASE EVENT DATE: 20230306
